FAERS Safety Report 5852388-2 (Version None)
Quarter: 2008Q3

REPORT INFORMATION
  Report Type: 
  Country: None (occurrence: None)
  Receive Date: 20080821
  Receipt Date: 20080813
  Transmission Date: 20090109
  Serious: Yes (Life-Threatening, Hospitalization)
  Sender: FDA-Public Use
  Company Number: DE-BAYER-200819043GPV

PATIENT
  Age: 36 Year
  Sex: Female
  Weight: 47 kg

DRUGS (7)
  1. MIRENA [Suspect]
     Indication: CONTRACEPTION
     Route: 015
     Dates: start: 20041201, end: 20051020
  2. VITAMIN TAB [Concomitant]
     Indication: DRUG USE FOR UNKNOWN INDICATION
     Route: 048
  3. LEVOTHYROXINE SODIUM [Concomitant]
     Indication: THYROID DISORDER
     Route: 048
  4. METRONIDAZOLE [Concomitant]
     Indication: DRUG USE FOR UNKNOWN INDICATION
     Route: 048
  5. DOXYCYCLINE [Concomitant]
     Indication: DRUG USE FOR UNKNOWN INDICATION
     Route: 048
  6. METRONIDAZOLE 0.75% [Concomitant]
     Indication: DRUG USE FOR UNKNOWN INDICATION
     Route: 061
  7. HYDROCORTISONE 1% OINTMENT [Concomitant]
     Indication: DRUG USE FOR UNKNOWN INDICATION
     Route: 061

REACTIONS (11)
  - BLISTER [None]
  - EMOTIONAL DISORDER [None]
  - ERYTHEMA [None]
  - IUCD COMPLICATION [None]
  - MENORRHAGIA [None]
  - MICTURITION URGENCY [None]
  - PROCEDURAL COMPLICATION [None]
  - RASH [None]
  - SWELLING FACE [None]
  - UTERINE RUPTURE [None]
  - VULVOVAGINAL PRURITUS [None]
